FAERS Safety Report 4843949-8 (Version None)
Quarter: 2005Q4

REPORT INFORMATION
  Report Type: 
  Country: None (occurrence: None)
  Receive Date: 20051130
  Receipt Date: 20051130
  Transmission Date: 20060501
  Serious: Yes (Hospitalization)
  Sender: FDA-Public Use
  Company Number: None

PATIENT
  Sex: Male

DRUGS (21)
  1. CLONAZEPAM [Suspect]
     Indication: ANXIETY
     Dosage: 0.5 MG   BID   PO
     Route: 048
     Dates: start: 20050802, end: 20050803
  2. INSULIN [Concomitant]
  3. APAP TAB [Concomitant]
  4. PROMETHAZINE [Concomitant]
  5. MORPHINE [Concomitant]
  6. MAGNESIUM HYDROXIDE TAB [Concomitant]
  7. SENNA [Concomitant]
  8. FAMOTIDINE [Concomitant]
  9. DOCUSATE [Concomitant]
  10. FLUVASATIN [Concomitant]
  11. ATENOLOL [Concomitant]
  12. SERTRALINE HCL [Concomitant]
  13. GABAPENTIN [Concomitant]
  14. CHLORAL HYDRATE [Concomitant]
  15. APAP WITH CODEINE [Concomitant]
  16. OXYBUTYNIN [Concomitant]
  17. BACLOFEN [Concomitant]
  18. OXYCODONE [Concomitant]
  19. AMITRIPTYLINE HCL [Concomitant]
  20. MORPHINE [Concomitant]
  21. METOCLOPRAMIDE [Concomitant]

REACTIONS (1)
  - MENTAL STATUS CHANGES [None]
